FAERS Safety Report 17414762 (Version 4)
Quarter: 2020Q2

REPORT INFORMATION
  Report Type: Spontaneous
  Country: GB (occurrence: GB)
  Receive Date: 20200213
  Receipt Date: 20200416
  Transmission Date: 20200713
  Serious: Yes (Other)
  Sender: FDA-Public Use
  Company Number: GB-ASCEND THERAPEUTICS US, LLC-2080298

PATIENT
  Sex: Female

DRUGS (3)
  1. OESTRODOSE (ESTRADOL HEMIHYDRATE) (GEL), PL16369/1550 [Suspect]
     Active Substance: ESTRADIOL
     Dates: start: 2019
  2. OESTROGEL (ESTRADIOL) (GEL), UNKNOWN,  UNKNOWN [Suspect]
     Active Substance: ESTRADIOL
     Dates: start: 20200202
  3. ESTROGEL [Suspect]
     Active Substance: ESTRADIOL
     Indication: MENOPAUSAL SYMPTOMS

REACTIONS (4)
  - Depression [Recovered/Resolved]
  - Drug ineffective [None]
  - Suicidal ideation [Recovered/Resolved]
  - Ill-defined disorder [Recovered/Resolved]

NARRATIVE: CASE EVENT DATE: 201912
